FAERS Safety Report 5205431-8 (Version None)
Quarter: 2007Q1

REPORT INFORMATION
  Report Type: 
  Country: None (occurrence: None)
  Receive Date: 20070108
  Receipt Date: 20070103
  Transmission Date: 20070707
  Serious: Yes (Hospitalization)
  Sender: FDA-Public Use
  Company Number: S06-USA-04548-01

PATIENT
  Age: 78 Year
  Sex: Male

DRUGS (17)
  1. NAMENDA [Suspect]
     Indication: DEMENTIA ALZHEIMER'S TYPE
     Dosage: 10 MG BID PO
     Route: 048
     Dates: start: 20050101, end: 20060616
  2. NAMENDA [Suspect]
     Indication: DEMENTIA ALZHEIMER'S TYPE
     Dosage: 5 MG QD PO
     Route: 048
     Dates: start: 20061026, end: 20061101
  3. NAMENDA [Suspect]
     Indication: DEMENTIA ALZHEIMER'S TYPE
     Dosage: 5 MG BID PO
     Route: 048
     Dates: start: 20061102, end: 20061108
  4. NAMENDA [Suspect]
     Indication: DEMENTIA ALZHEIMER'S TYPE
     Dosage: 15 MG QD PO
     Route: 048
     Dates: start: 20061109, end: 20061115
  5. NAMENDA [Suspect]
     Indication: DEMENTIA ALZHEIMER'S TYPE
     Dosage: 10 MG BID PO
     Route: 048
     Dates: start: 20061106
  6. ZOLOFT [Suspect]
     Indication: DEPRESSION
     Dosage: 200 MG, QHS
     Dates: end: 20060616
  7. COUMADIN [Concomitant]
  8. RISPERDAL [Concomitant]
  9. RAZADYNE [Concomitant]
  10. ZANTAC [Concomitant]
  11. SINGULAIR [Concomitant]
  12. LORAZEPAM [Concomitant]
  13. CLARITIN [Concomitant]
  14. EYE DROPS [Concomitant]
  15. NEXIUM [Concomitant]
  16. COLACE (DOCUSATE SODIUM) [Concomitant]
  17. TYLENOL [Concomitant]

REACTIONS (3)
  - CONTUSION [None]
  - FATIGUE [None]
  - PLATELET COUNT DECREASED [None]
